FAERS Safety Report 23854045 (Version 1)
Quarter: 2024Q2

REPORT INFORMATION
  Report Type: Spontaneous
  Country: US (occurrence: US)
  Receive Date: 20240514
  Receipt Date: 20240514
  Transmission Date: 20240716
  Serious: No
  Sender: FDA-Public Use
  Company Number: US-PFIZER INC-202400107243

PATIENT
  Age: 34 Year
  Sex: Male
  Weight: 74.84 kg

DRUGS (3)
  1. IBRANCE [Suspect]
     Active Substance: PALBOCICLIB
     Indication: Breast cancer
     Dosage: 125 MG ONCE A TIME
     Route: 048
  2. DULOXETINE [Concomitant]
     Active Substance: DULOXETINE
  3. BELBUCA [Concomitant]
     Active Substance: BUPRENORPHINE HYDROCHLORIDE

REACTIONS (2)
  - Fatigue [Unknown]
  - Myalgia [Unknown]
